FAERS Safety Report 7250343-1 (Version None)
Quarter: 2011Q1

REPORT INFORMATION
  Report Type: 
  Country: None (occurrence: None)
  Receive Date: 20110128
  Receipt Date: 20110120
  Transmission Date: 20110831
  Serious: Yes (Disabling, Other)
  Sender: FDA-Public Use
  Company Number: GB-PFIZER INC-2010137295

PATIENT
  Age: 63 Year
  Sex: Female
  Weight: 89 kg

DRUGS (3)
  1. LYRICA [Suspect]
     Dosage: 150 MG, 2X/DAY
     Route: 048
  2. LYRICA [Suspect]
     Dosage: 300 MG, 2X/DAY
  3. LYRICA [Suspect]
     Indication: GENERALISED ANXIETY DISORDER
     Dosage: 75 MG, 2X/DAY
     Dates: start: 20090901

REACTIONS (13)
  - VOMITING [None]
  - INSOMNIA [None]
  - ANXIETY [None]
  - MUSCLE TWITCHING [None]
  - NAUSEA [None]
  - NERVOUSNESS [None]
  - HYPERHIDROSIS [None]
  - MUSCULAR WEAKNESS [None]
  - HEADACHE [None]
  - WITHDRAWAL SYNDROME [None]
  - DIARRHOEA [None]
  - MYALGIA [None]
  - PAIN [None]
